FAERS Safety Report 10193920 (Version 1)
Quarter: 2014Q2

REPORT INFORMATION
  Report Type: Spontaneous
  Country: US (occurrence: US)
  Receive Date: 20140524
  Receipt Date: 20140524
  Transmission Date: 20141212
  Serious: No
  Sender: FDA-Public Use
  Company Number: US-SANOFI-AVENTIS-2013SA053294

PATIENT
  Age: 69 Year
  Sex: Female

DRUGS (2)
  1. LANTUS [Suspect]
     Indication: TYPE 2 DIABETES MELLITUS
     Dosage: DOSE: 35-25 UNITS
     Route: 058
     Dates: start: 201112
  2. LANTUS [Suspect]
     Indication: TYPE 2 DIABETES MELLITUS
     Dosage: DOSE: 35-25 UNITS
     Route: 058
     Dates: start: 201112

REACTIONS (7)
  - Contusion [Unknown]
  - Skin striae [Unknown]
  - Oropharyngeal pain [Unknown]
  - Visual impairment [Unknown]
  - Injection site haemorrhage [Unknown]
  - Injection site pain [Unknown]
  - Injection site infection [Unknown]
